FAERS Safety Report 19505101 (Version 1)
Quarter: 2021Q3

REPORT INFORMATION
  Report Type: Spontaneous
  Country: US (occurrence: US)
  Receive Date: 20210707
  Receipt Date: 20210707
  Transmission Date: 20211014
  Serious: Yes (Hospitalization)
  Sender: FDA-Public Use
  Company Number: None

PATIENT
  Age: 69 Year
  Sex: Female

DRUGS (1)
  1. ZARXIO [Suspect]
     Active Substance: FILGRASTIM-SNDZ
     Indication: BREAST CANCER FEMALE
     Route: 058
     Dates: start: 20200915

REACTIONS (6)
  - Urinary tract infection [None]
  - Vomiting [None]
  - Sepsis [None]
  - Nausea [None]
  - Therapy interrupted [None]
  - White blood cell count increased [None]

NARRATIVE: CASE EVENT DATE: 20210702
